FAERS Safety Report 9037894 (Version 1)
Quarter: 2013Q1

REPORT INFORMATION
  Report Type: Spontaneous
  Country: US (occurrence: US)
  Receive Date: 20130129
  Receipt Date: 20130129
  Transmission Date: 20140127
  Serious: Yes (Other)
  Sender: FDA-Public Use
  Company Number: US-ELI_LILLY_AND_COMPANY-US201301006913

PATIENT
  Sex: Female

DRUGS (1)
  1. PROZAC [Suspect]

REACTIONS (6)
  - Physical assault [Unknown]
  - Intentional self-injury [Unknown]
  - Loss of consciousness [Unknown]
  - Mental disorder [Unknown]
  - Road traffic accident [Unknown]
  - Overdose [Unknown]
